FAERS Safety Report 13338009 (Version 1)
Quarter: 2017Q1

REPORT INFORMATION
  Report Type: Spontaneous
  Country: US (occurrence: US)
  Receive Date: 20170315
  Receipt Date: 20170315
  Transmission Date: 20170428
  Serious: No
  Sender: FDA-Public Use
  Company Number: None

PATIENT
  Age: 71 Year
  Sex: Female
  Weight: 119.7 kg

DRUGS (1)
  1. SIMPONI [Suspect]
     Active Substance: GOLIMUMAB
     Indication: RHEUMATOID ARTHRITIS
     Dosage: ?          OTHER FREQUENCY:Q8 WEEKS;?
     Route: 042

REACTIONS (8)
  - Injection site swelling [None]
  - Joint swelling [None]
  - Injection site pain [None]
  - Injection site erythema [None]
  - Injection site rash [None]
  - Injection site pruritus [None]
  - Injection site bruising [None]
  - Peripheral swelling [None]

NARRATIVE: CASE EVENT DATE: 20161206
